FAERS Safety Report 4530161-5 (Version None)
Quarter: 2004Q4

REPORT INFORMATION
  Report Type: 
  Country: None (occurrence: None)
  Receive Date: 20041215
  Receipt Date: 20041215
  Transmission Date: 20050328
  Serious: Yes (Life-Threatening)
  Sender: FDA-Public Use
  Company Number: None

PATIENT
  Age: 53 Year
  Sex: Female
  Weight: 74.3899 kg

DRUGS (6)
  1. CRESTOR [Suspect]
     Indication: BLOOD CHOLESTEROL INCREASED
     Dosage: 20 MG QD ORAL
     Route: 048
     Dates: start: 20030801, end: 20040701
  2. CRESTOR [Suspect]
     Indication: BLOOD TRIGLYCERIDES INCREASED
     Dosage: 20 MG QD ORAL
     Route: 048
     Dates: start: 20030801, end: 20040701
  3. PRAVACHOL [Suspect]
     Indication: BLOOD CHOLESTEROL INCREASED
     Dosage: 40MG QD ORAL
     Route: 048
     Dates: start: 20030101, end: 20040701
  4. PRAVACHOL [Suspect]
     Indication: BLOOD TRIGLYCERIDES INCREASED
     Dosage: 40MG QD ORAL
     Route: 048
     Dates: start: 20030101, end: 20040701
  5. ZETIA [Concomitant]
  6. TRICOR [Concomitant]

REACTIONS (6)
  - MALAISE [None]
  - MARKEDLY REDUCED DIETARY INTAKE [None]
  - MYALGIA [None]
  - POISONING [None]
  - VOMITING [None]
  - WEIGHT DECREASED [None]
